FAERS Safety Report 11464128 (Version 1)
Quarter: 2015Q3

REPORT INFORMATION
  Report Type: Spontaneous
  Country: US (occurrence: US)
  Receive Date: 20150831
  Receipt Date: 20150831
  Transmission Date: 20151125
  Serious: Yes (Other)
  Sender: FDA-Public Use
  Company Number: US-ELI_LILLY_AND_COMPANY-US201106006126

PATIENT
  Sex: Female

DRUGS (2)
  1. CYMBALTA [Suspect]
     Active Substance: DULOXETINE HYDROCHLORIDE
     Indication: CONVERSION DISORDER
     Dosage: 30 MG, UNKNOWN
     Dates: start: 2009
  2. CYMBALTA [Suspect]
     Active Substance: DULOXETINE HYDROCHLORIDE
     Dosage: UNK, QOD

REACTIONS (13)
  - Gastrointestinal disorder [Unknown]
  - Insomnia [Unknown]
  - Intentional product misuse [Not Recovered/Not Resolved]
  - Fatigue [Unknown]
  - Decreased appetite [Unknown]
  - Eye disorder [Unknown]
  - Headache [Unknown]
  - Haematochezia [Unknown]
  - Head discomfort [Unknown]
  - Wrong technique in product usage process [Not Recovered/Not Resolved]
  - Vomiting [Unknown]
  - Off label use [Not Recovered/Not Resolved]
  - Drug withdrawal syndrome [Unknown]

NARRATIVE: CASE EVENT DATE: 2009
